FAERS Safety Report 13041224 (Version 1)
Quarter: 2016Q4

REPORT INFORMATION
  Report Type: Spontaneous
  Country: US (occurrence: US)
  Receive Date: 20161219
  Receipt Date: 20161219
  Transmission Date: 20170207
  Serious: No
  Sender: FDA-Public Use
  Company Number: US-ROCHE-1164597

PATIENT
  Age: 55 Year
  Sex: Female

DRUGS (2)
  1. VEMURAFENIB [Suspect]
     Active Substance: VEMURAFENIB
     Indication: MALIGNANT MELANOMA
     Route: 065
  2. VEMURAFENIB [Suspect]
     Active Substance: VEMURAFENIB
     Dosage: REDUCED DOSE
     Route: 065

REACTIONS (3)
  - Neutrophilic dermatosis [Unknown]
  - Vasculitis [Recovering/Resolving]
  - Panniculitis [Recovering/Resolving]
